FAERS Safety Report 18323942 (Version 2)
Quarter: 2020Q4

REPORT INFORMATION
  Report Type: Spontaneous
  Country: US (occurrence: US)
  Receive Date: 20200928
  Receipt Date: 20201016
  Transmission Date: 20210113
  Serious: No
  Sender: FDA-Public Use
  Company Number: US-BAYER-2020-209638

PATIENT
  Age: 18 Year
  Sex: Female

DRUGS (1)
  1. MIRENA [Suspect]
     Active Substance: LEVONORGESTREL
     Indication: CONTRACEPTION
     Dosage: 20 ?G PER DAY CONTINUOUSLY
     Route: 015
     Dates: start: 20200615, end: 20200615

REACTIONS (3)
  - Post procedural discomfort [Recovering/Resolving]
  - Complication of device insertion [Recovering/Resolving]
  - Procedural pain [None]

NARRATIVE: CASE EVENT DATE: 20200615
